FAERS Safety Report 9433139 (Version 3)
Quarter: 2014Q1

REPORT INFORMATION
  Report Type: Spontaneous
  Country: US (occurrence: US)
  Receive Date: 20130731
  Receipt Date: 20140313
  Transmission Date: 20141002
  Serious: Yes (Life-Threatening, Hospitalization, Disabling, Other)
  Sender: FDA-Public Use
  Company Number: US-GLAXOSMITHKLINE-A1015797A

PATIENT
  Sex: Female

DRUGS (3)
  1. LAMICTAL [Suspect]
     Indication: BIPOLAR DISORDER
     Dosage: 50MG PER DAY
     Route: 048
     Dates: start: 2013, end: 201303
  2. CELEXA [Concomitant]
  3. ABILIFY [Concomitant]

REACTIONS (6)
  - Stevens-Johnson syndrome [Recovered/Resolved]
  - Rash [Recovered/Resolved]
  - Ill-defined disorder [Unknown]
  - Blister [Recovered/Resolved]
  - Skin discolouration [Recovered/Resolved]
  - Incorrect dose administered [Recovered/Resolved]
